FAERS Safety Report 19817078 (Version 11)
Quarter: 2023Q1

REPORT INFORMATION
  Report Type: Report from Study
  Country: FR (occurrence: FR)
  Receive Date: 20210910
  Receipt Date: 20230315
  Transmission Date: 20230417
  Serious: Yes (Life-Threatening, Hospitalization)
  Sender: FDA-Public Use
  Company Number: FR-IPSEN GROUP, RESEARCH AND DEVELOPMENT-2021-21642

PATIENT

DRUGS (4)
  1. CABOZANTINIB [Suspect]
     Active Substance: CABOZANTINIB
     Indication: Metastatic renal cell carcinoma
     Dosage: 60 MG, QD
     Route: 065
     Dates: start: 20210830, end: 20210904
  2. ZOMETA [Concomitant]
     Active Substance: ZOLEDRONIC ACID
     Indication: Hypercalcaemia
     Dosage: UNK, ONE TIME PER WEEK
     Route: 042
     Dates: start: 202108, end: 20210906
  3. ZOPICLONE [Concomitant]
     Active Substance: ZOPICLONE
     Indication: Anxiety
     Dosage: 7.5 MG, DAILY
     Route: 048
     Dates: start: 20210828, end: 202109
  4. PRIMPERAN [Concomitant]
     Active Substance: METOCLOPRAMIDE HYDROCHLORIDE
     Indication: Nausea
     Dosage: 10 MG AS NEEDED
     Route: 048
     Dates: start: 20210825, end: 20210927

REACTIONS (1)
  - Posterior reversible encephalopathy syndrome [Recovered/Resolved]

NARRATIVE: CASE EVENT DATE: 20210905
